FAERS Safety Report 13409195 (Version 4)
Quarter: 2022Q2

REPORT INFORMATION
  Report Type: Spontaneous
  Country: US (occurrence: US)
  Receive Date: 20170406
  Receipt Date: 20220615
  Transmission Date: 20220720
  Serious: Yes (Other)
  Sender: FDA-Public Use
  Company Number: US-JNJFOC-20170116637

PATIENT
  Sex: Male

DRUGS (8)
  1. RISPERDAL [Suspect]
     Active Substance: RISPERIDONE
     Indication: Bipolar disorder
     Dosage: VARYING DOSES OF UNSPECIFIED DOSE, 0.5 MG, 01 MG AND 1.5 MG AND VARYING FREQUENCIES (2BID/3BID)
     Route: 048
     Dates: start: 20051107, end: 20091118
  2. RISPERDAL [Suspect]
     Active Substance: RISPERIDONE
     Indication: Attention deficit hyperactivity disorder
     Route: 048
     Dates: end: 20110725
  3. RISPERIDONE [Suspect]
     Active Substance: RISPERIDONE
     Indication: Bipolar disorder
     Route: 048
     Dates: start: 20090220
  4. RISPERIDONE [Suspect]
     Active Substance: RISPERIDONE
     Indication: Attention deficit hyperactivity disorder
     Route: 048
     Dates: start: 20090601
  5. RISPERIDONE [Suspect]
     Active Substance: RISPERIDONE
     Route: 048
     Dates: start: 20090906
  6. RISPERIDONE [Suspect]
     Active Substance: RISPERIDONE
     Route: 048
     Dates: start: 20100205
  7. RISPERIDONE [Suspect]
     Active Substance: RISPERIDONE
     Route: 048
     Dates: start: 20100405
  8. RISPERIDONE [Suspect]
     Active Substance: RISPERIDONE
     Indication: Product used for unknown indication
     Route: 065

REACTIONS (3)
  - Gynaecomastia [Unknown]
  - Obesity [Unknown]
  - Emotional distress [Unknown]

NARRATIVE: CASE EVENT DATE: 20130101
